FAERS Safety Report 8249583-4 (Version None)
Quarter: 2012Q2

REPORT INFORMATION
  Report Type: 
  Country: None (occurrence: None)
  Receive Date: 20120402
  Receipt Date: 20120326
  Transmission Date: 20120825
  Serious: Yes (Death)
  Sender: FDA-Public Use
  Company Number: DE-ASTELLAS-2012EU002312

PATIENT
  Sex: Male
  Weight: 61 kg

DRUGS (8)
  1. MICAFUNGIN INJECTION [Suspect]
     Indication: SEPSIS
     Dosage: 100 MG, UID/QD
     Route: 042
     Dates: start: 20111019
  2. DIGITOXIN TAB [Concomitant]
     Dosage: UNK
     Route: 065
     Dates: start: 20111009
  3. MICAFUNGIN INJECTION [Suspect]
     Indication: POSTOPERATIVE WOUND INFECTION
  4. RAMIPRIL [Concomitant]
     Dosage: UNK
     Route: 065
     Dates: start: 20111009
  5. PROPOFOL [Concomitant]
     Dosage: UNK
     Route: 065
     Dates: start: 20111019
  6. NORADRENALIN [Concomitant]
     Dosage: UNK
     Route: 065
     Dates: start: 20111019
  7. HEPARIN [Concomitant]
     Dosage: UNK
     Route: 065
     Dates: start: 20111009
  8. DOBUTAMIN [Concomitant]
     Dosage: UNK
     Route: 065
     Dates: start: 20111019

REACTIONS (1)
  - SEPTIC SHOCK [None]
